FAERS Safety Report 9306256 (Version 3)
Quarter: 2013Q2

REPORT INFORMATION
  Report Type: Spontaneous
  Country: JP (occurrence: JP)
  Receive Date: 20130523
  Receipt Date: 20130626
  Transmission Date: 20140414
  Serious: Yes (Hospitalization)
  Sender: FDA-Public Use
  Company Number: JP-PFIZER INC-2013157208

PATIENT
  Age: 50 Year
  Sex: Male
  Weight: 72 kg

DRUGS (1)
  1. HALCION [Suspect]
     Dosage: 0.25 MG, DAILY
     Route: 048

REACTIONS (1)
  - Hepatitis alcoholic [Recovering/Resolving]
